FAERS Safety Report 10154385 (Version 1)
Quarter: 2014Q2

REPORT INFORMATION
  Report Type: Spontaneous
  Country: US (occurrence: US)
  Receive Date: 20140506
  Receipt Date: 20140506
  Transmission Date: 20141212
  Serious: No
  Sender: FDA-Public Use
  Company Number: US-PFIZER INC-2014122495

PATIENT
  Age: 76 Year
  Sex: Female
  Weight: 57.6 kg

DRUGS (1)
  1. XELJANZ [Suspect]
     Indication: RHEUMATOID ARTHRITIS
     Dosage: UNKNOWN DOSE TWICE DAILY
     Route: 048
     Dates: start: 20131205, end: 20140313

REACTIONS (1)
  - Infection [Not Recovered/Not Resolved]
